FAERS Safety Report 17977600 (Version 5)
Quarter: 2021Q2

REPORT INFORMATION
  Report Type: Report from Study
  Country: CO (occurrence: CO)
  Receive Date: 20200703
  Receipt Date: 20210427
  Transmission Date: 20210717
  Serious: Yes (Hospitalization)
  Sender: FDA-Public Use
  Company Number: CO-ASTELLAS-2019US038409

PATIENT
  Age: 63 Year
  Sex: Male

DRUGS (14)
  1. PREDNISOLONE. [Concomitant]
     Active Substance: PREDNISOLONE
     Indication: PRODUCT USED FOR UNKNOWN INDICATION
     Route: 048
     Dates: start: 20190627
  2. CARVEDILOL. [Concomitant]
     Active Substance: CARVEDILOL
     Indication: PRODUCT USED FOR UNKNOWN INDICATION
     Route: 048
     Dates: start: 201907
  3. MYCOPHENOLATE [Concomitant]
     Active Substance: MYCOPHENOLIC ACID
     Route: 048
     Dates: start: 20190724
  4. CALCIUM CARBONATE. [Concomitant]
     Active Substance: CALCIUM CARBONATE
     Indication: PRODUCT USED FOR UNKNOWN INDICATION
     Route: 048
     Dates: start: 201907
  5. PREDNISOLONE. [Concomitant]
     Active Substance: PREDNISOLONE
     Route: 048
     Dates: start: 20190725
  6. TACROLIMUS. [Suspect]
     Active Substance: TACROLIMUS
     Route: 048
     Dates: start: 202104
  7. TRIMETHOPRIM. [Concomitant]
     Active Substance: TRIMETHOPRIM
     Indication: PRODUCT USED FOR UNKNOWN INDICATION
     Dosage: 160MG/800MG TUESDAY THURSDAY SATURDAY, ONCE DAILY
     Route: 048
     Dates: start: 201907
  8. VALGANCICLOVIR. [Concomitant]
     Active Substance: VALGANCICLOVIR
     Indication: PRODUCT USED FOR UNKNOWN INDICATION
     Route: 048
     Dates: start: 201907
  9. TAMSULOSIN [Concomitant]
     Active Substance: TAMSULOSIN
     Indication: PRODUCT USED FOR UNKNOWN INDICATION
     Dosage: 0.4 MG, ONCE DAILY
     Route: 048
     Dates: start: 201907
  10. OMEPRAZOLE. [Concomitant]
     Active Substance: OMEPRAZOLE
     Indication: PRODUCT USED FOR UNKNOWN INDICATION
     Route: 048
     Dates: start: 201907
  11. TACROLIMUS. [Suspect]
     Active Substance: TACROLIMUS
     Indication: RENAL TRANSPLANT
     Dosage: 6 MG(1 CAPSULE OF 5 MG AND 1 CAPSULE OF 1 MG), ONCE DAILY
     Route: 048
     Dates: start: 20190727, end: 20190909
  12. TACROLIMUS. [Suspect]
     Active Substance: TACROLIMUS
     Dosage: 7 MG(1 CAPSULE OF 5 AND 2 CAPSULE OF 1 MG), ONCE DAILY
     Route: 048
     Dates: start: 20190910, end: 202104
  13. MYCOPHENOLATE [Concomitant]
     Active Substance: MYCOPHENOLIC ACID
     Indication: PRODUCT USED FOR UNKNOWN INDICATION
     Dosage: 360 MG, TWICE DAILY (IN THE MORNING AND AFTER NOON)
     Route: 048
     Dates: start: 20190627
  14. CALCITRIOL. [Concomitant]
     Active Substance: CALCITRIOL
     Indication: PRODUCT USED FOR UNKNOWN INDICATION
     Dosage: 0.5 MG, ONCE DAILY
     Route: 048
     Dates: start: 201907

REACTIONS (8)
  - Bacterial infection [Recovering/Resolving]
  - Immunosuppressant drug level decreased [Recovered/Resolved]
  - Urinary tract infection [Recovered/Resolved]
  - Chills [Recovered/Resolved]
  - Blood pressure abnormal [Recovered/Resolved]
  - Blood pressure abnormal [Recovered/Resolved]
  - Illness [Recovered/Resolved]
  - Immunosuppressant drug level increased [Not Recovered/Not Resolved]

NARRATIVE: CASE EVENT DATE: 20190909
